FAERS Safety Report 13742833 (Version 2)
Quarter: 2020Q3

REPORT INFORMATION
  Report Type: Report from Study
  Country: JP (occurrence: JP)
  Receive Date: 20170711
  Receipt Date: 20170727
  Transmission Date: 20201105
  Serious: Yes (Death, Hospitalization)
  Sender: FDA-Public Use
  Company Number: JP-ASTRAZENECA-2016SF09643

PATIENT
  Age: 26786 Day
  Sex: Male

DRUGS (44)
  1. LENOGRASTIM [Concomitant]
     Active Substance: LENOGRASTIM
     Indication: NEUTROPHIL COUNT DECREASED
     Route: 042
     Dates: start: 20161019, end: 20161023
  2. RED CELL CONCENTRATES, MANNITOLADENINE PHOSPHATE [Concomitant]
     Indication: ANAEMIA
     Route: 042
     Dates: start: 20161019, end: 20161020
  3. DEXAMETHASONE SODIUM PHOSPHATE. [Concomitant]
     Active Substance: DEXAMETHASONE SODIUM PHOSPHATE
     Indication: CHEMOTHERAPY
     Dosage: 9.9MG ONCE/SINGLE ADMINISTRATION
     Route: 042
     Dates: start: 20161007, end: 20161007
  4. FUROSEMIDE. [Concomitant]
     Active Substance: FUROSEMIDE
     Indication: MICTURITION DISORDER
     Route: 048
     Dates: start: 20161010, end: 20161011
  5. SODIUM CHLORIDE. [Concomitant]
     Active Substance: SODIUM CHLORIDE
     Indication: CHEMOTHERAPY
     Route: 042
     Dates: start: 20161017, end: 20161026
  6. RED CELL CONCENTRATES, MANNITOLADENINE PHOSPHATE [Concomitant]
     Indication: ANAEMIA
     Route: 042
     Dates: start: 20161031, end: 20161031
  7. LIDOCAINE. [Concomitant]
     Active Substance: LIDOCAINE
     Indication: STOMATITIS
     Dosage: 4 %/ 10 ML/ PROPER QUANTITY PER ONCE, QID
     Route: 002
     Dates: start: 20161020, end: 20161026
  8. D?MANNITOL [Concomitant]
     Active Substance: MANNITOL
     Indication: CHEMOTHERAPY
     Dosage: 300.0ML ONCE/SINGLE ADMINISTRATION
     Route: 042
     Dates: start: 20161007, end: 20161007
  9. FENTANYL CITRATE. [Concomitant]
     Active Substance: FENTANYL CITRATE
     Indication: NON-SMALL CELL LUNG CANCER
     Route: 062
     Dates: start: 20160930, end: 20161026
  10. DIFLORASONE DIACETATE. [Concomitant]
     Active Substance: DIFLORASONE DIACETATE
     Indication: URTICARIA
     Dosage: 1 APPLICATION, BID
     Route: 003
     Dates: start: 20161017, end: 20161021
  11. ACETATED RINGER SOLUTION [Concomitant]
     Indication: DECREASED APPETITE
     Route: 042
     Dates: start: 20161018, end: 20161026
  12. ASCORBIC ACID. [Concomitant]
     Active Substance: ASCORBIC ACID
     Indication: DECREASED APPETITE
     Route: 042
     Dates: start: 20161018, end: 20161026
  13. RED CELL CONCENTRATES, MANNITOLADENINE PHOSPHATE [Concomitant]
     Indication: ANAEMIA
     Dosage: 2.0IU ONCE/SINGLE ADMINISTRATION
     Route: 042
     Dates: start: 20161119, end: 20161119
  14. MAGNESIUM SULFATE. [Concomitant]
     Active Substance: MAGNESIUM SULFATE
     Indication: CHEMOTHERAPY
     Dosage: 10.0ML ONCE/SINGLE ADMINISTRATION
     Route: 042
     Dates: start: 20161007, end: 20161007
  15. TREMELIMUMAB. [Suspect]
     Active Substance: TREMELIMUMAB
     Indication: NON-SMALL CELL LUNG CANCER
     Route: 042
     Dates: start: 20160902, end: 20160902
  16. CISPLATIN. [Suspect]
     Active Substance: CISPLATIN
     Indication: NON-SMALL CELL LUNG CANCER
     Route: 042
     Dates: start: 20161007, end: 20161114
  17. PEMETREXED. [Suspect]
     Active Substance: PEMETREXED
     Indication: NON-SMALL CELL LUNG CANCER
     Route: 042
     Dates: start: 20161007, end: 20161114
  18. ESOMEPRAZOLE MAGNESIUM. [Concomitant]
     Active Substance: ESOMEPRAZOLE MAGNESIUM
     Indication: GASTRIC ULCER
     Route: 048
     Dates: start: 20160808
  19. SITAGLIPTIN PHOSPHATE [Concomitant]
     Active Substance: SITAGLIPTIN PHOSPHATE
     Indication: DIABETES MELLITUS
     Route: 048
     Dates: start: 20161108
  20. OLOPATADINE HYDROCHLORIDE. [Concomitant]
     Active Substance: OLOPATADINE HYDROCHLORIDE
     Indication: URTICARIA
     Route: 048
     Dates: start: 20161017, end: 20161024
  21. PANVITAN [Concomitant]
     Indication: PROPHYLAXIS
     Route: 048
     Dates: start: 20160930, end: 20161110
  22. MAGNESIUM OXIDE. [Concomitant]
     Active Substance: MAGNESIUM OXIDE
     Indication: CONSTIPATION
     Route: 048
     Dates: start: 20160923
  23. FENTANYL CITRATE. [Concomitant]
     Active Substance: FENTANYL CITRATE
     Indication: NON-SMALL CELL LUNG CANCER
     Route: 062
     Dates: start: 20161119
  24. THIAMINE DISULFIDE PHOSPHATE, PYRIDOXINE HYDROCHLORIDE, CYANOCOBALAMIN [Concomitant]
     Indication: DECREASED APPETITE
     Dosage: 1 V, QD
     Route: 042
     Dates: start: 20161018, end: 20161018
  25. LIDOCAINE. [Concomitant]
     Active Substance: LIDOCAINE
     Indication: STOMATITIS
     Dosage: 1 APPLICATION, ONCE
     Route: 003
     Dates: start: 20161017, end: 20161017
  26. MEDI4736 [Suspect]
     Active Substance: DURVALUMAB
     Indication: NON-SMALL CELL LUNG CANCER
     Route: 042
     Dates: start: 20160902, end: 20160902
  27. MEDI4736 [Suspect]
     Active Substance: DURVALUMAB
     Indication: NON-SMALL CELL LUNG CANCER
     Route: 042
     Dates: start: 20160930, end: 20160930
  28. NAPROXEN. [Concomitant]
     Active Substance: NAPROXEN
     Indication: PYREXIA
     Route: 048
     Dates: start: 20160808
  29. GLICLAZIDE [Concomitant]
     Active Substance: GLICLAZIDE
     Indication: DIABETES MELLITUS
     Route: 048
     Dates: start: 20160906, end: 20161017
  30. MECOBALAMIN [Concomitant]
     Active Substance: METHYLCOBALAMIN
     Indication: PROPHYLAXIS
     Dosage: 500.0UG ONCE/SINGLE ADMINISTRATION
     Route: 030
     Dates: start: 20160823, end: 20160823
  31. FUROSEMIDE. [Concomitant]
     Active Substance: FUROSEMIDE
     Indication: MICTURITION DISORDER
     Route: 042
     Dates: start: 20161008, end: 20161008
  32. SODIUM GUALENATE HYDRATE, SODIUM BICARBONATE [Concomitant]
     Indication: STOMATITIS
     Dosage: 10 G/ PROPER QUANTITY PER ONCE, QID
     Route: 002
     Dates: start: 20161020, end: 20161026
  33. TREMELIMUMAB. [Suspect]
     Active Substance: TREMELIMUMAB
     Indication: NON-SMALL CELL LUNG CANCER
     Route: 042
     Dates: start: 20160930, end: 20160930
  34. SITAGLIPTIN PHOSPHATE [Concomitant]
     Active Substance: SITAGLIPTIN PHOSPHATE
     Indication: DIABETES MELLITUS
     Route: 048
     Dates: start: 20160903, end: 20161017
  35. MECOBALAMIN [Concomitant]
     Active Substance: METHYLCOBALAMIN
     Indication: PROPHYLAXIS
     Dosage: 500.0UG ONCE/SINGLE ADMINISTRATION
     Route: 030
     Dates: start: 20160930, end: 20160930
  36. PANVITAN [Concomitant]
     Indication: PROPHYLAXIS
     Route: 048
     Dates: start: 20160823, end: 20160831
  37. FAMOTIDINE. [Concomitant]
     Active Substance: FAMOTIDINE
     Indication: DECREASED APPETITE
     Route: 042
     Dates: start: 20161018, end: 20161026
  38. RED CELL CONCENTRATES, MANNITOLADENINE PHOSPHATE [Concomitant]
     Indication: ANAEMIA
     Dosage: 2.0IU ONCE/SINGLE ADMINISTRATION
     Route: 042
     Dates: start: 20161202, end: 20161202
  39. HYDROCORTISONE BUTYRATE. [Concomitant]
     Active Substance: HYDROCORTISONE BUTYRATE
     Indication: URTICARIA
     Dosage: 1 APPLICATION, BID
     Route: 003
     Dates: start: 20161017, end: 20161128
  40. PLATELETS [Concomitant]
     Active Substance: HUMAN PLATELET, ALLOGENIC
     Indication: PLATELET COUNT DECREASED
     Route: 042
     Dates: start: 20161018, end: 20161020
  41. RED CELL CONCENTRATES, MANNITOLADENINE PHOSPHATE [Concomitant]
     Indication: ANAEMIA
     Route: 042
     Dates: start: 20161107, end: 20161107
  42. FOSAPREPITANT MEGLUMINE [Concomitant]
     Active Substance: FOSAPREPITANT
     Indication: CHEMOTHERAPY
     Dosage: 150.0MG ONCE/SINGLE ADMINISTRATION
     Route: 042
     Dates: start: 20161007, end: 20161007
  43. PALONOSETRON HYDROCHLORIDE. [Concomitant]
     Active Substance: PALONOSETRON HYDROCHLORIDE
     Indication: CHEMOTHERAPY
     Dosage: 0.75 MG/50ML ONCE
     Route: 042
     Dates: start: 20161007, end: 20161007
  44. DEXAMETHASONE SODIUM PHOSPHATE. [Concomitant]
     Active Substance: DEXAMETHASONE SODIUM PHOSPHATE
     Indication: CHEMOTHERAPY
     Dosage: 6.6MG ONCE/SINGLE ADMINISTRATION
     Route: 042
     Dates: start: 20161008, end: 20161009

REACTIONS (4)
  - Urticaria [Recovered/Resolved]
  - Platelet count decreased [Recovered/Resolved]
  - Anaemia [Not Recovered/Not Resolved]
  - Febrile neutropenia [Recovered/Resolved]

NARRATIVE: CASE EVENT DATE: 20161013
